FAERS Safety Report 7479423-2 (Version None)
Quarter: 2011Q2

REPORT INFORMATION
  Report Type: 
  Country: None (occurrence: None)
  Receive Date: 20110513
  Receipt Date: 20110504
  Transmission Date: 20111010
  Serious: Yes (Life-Threatening, Other)
  Sender: FDA-Public Use
  Company Number: US-GENZYME-CLOF-1001361

PATIENT
  Sex: Female
  Weight: 53 kg

DRUGS (9)
  1. METHOTREXATE [Concomitant]
     Dosage: 16 MG, ONCE
     Route: 042
     Dates: start: 20101127, end: 20101127
  2. MELPHALAN HYDROCHLORIDE [Suspect]
     Indication: ACUTE MYELOID LEUKAEMIA
     Dosage: 110 MG, UNK
     Route: 065
     Dates: start: 20101121, end: 20101122
  3. MYCOPHENOLATE MOFETIL [Concomitant]
     Dosage: 500 MG, BID
     Route: 042
     Dates: start: 20110228, end: 20110302
  4. TACROLIMUS [Concomitant]
     Indication: PROPHYLAXIS AGAINST GRAFT VERSUS HOST DISEASE
     Dosage: UNK
     Route: 042
     Dates: start: 20101121, end: 20110316
  5. CLOLAR [Suspect]
     Indication: ACUTE MYELOID LEUKAEMIA
     Dosage: 20 MG/M2, QDX5
     Route: 042
     Dates: start: 20101115, end: 20101119
  6. MYCOPHENOLATE MOFETIL [Concomitant]
     Indication: PROPHYLAXIS AGAINST GRAFT VERSUS HOST DISEASE
     Dosage: UNK
     Dates: start: 20101129, end: 20110228
  7. THIOTEPA [Suspect]
     Indication: ACUTE MYELOID LEUKAEMIA
     Dosage: 600 MG, UNK
     Route: 065
     Dates: start: 20101120, end: 20101120
  8. FILGRASTIM [Concomitant]
     Indication: STEM CELL TRANSPLANT
     Dosage: 480 MCG, QD
     Route: 058
     Dates: start: 20101201
  9. METHOTREXATE [Concomitant]
     Indication: PROPHYLAXIS AGAINST GRAFT VERSUS HOST DISEASE
     Dosage: 16 MG, ONCE
     Route: 042
     Dates: start: 20101125, end: 20101125

REACTIONS (9)
  - ATRIAL FLUTTER [None]
  - HEPATIC FUNCTION ABNORMAL [None]
  - ACUTE RESPIRATORY FAILURE [None]
  - CEREBRAL ISCHAEMIA [None]
  - THROMBOSIS [None]
  - HYPERTENSION [None]
  - RENAL FAILURE [None]
  - MUCOSAL INFLAMMATION [None]
  - HYPERBILIRUBINAEMIA [None]
